FAERS Safety Report 5528908-4 (Version None)
Quarter: 2007Q4

REPORT INFORMATION
  Report Type: 
  Country: None (occurrence: None)
  Receive Date: 20071126
  Receipt Date: 20071119
  Transmission Date: 20080405
  Serious: Yes (Hospitalization)
  Sender: FDA-Public Use
  Company Number: 2007SP022416

PATIENT
  Age: 51 Year
  Sex: Male
  Weight: 60 kg

DRUGS (6)
  1. PEG-INTRON [Suspect]
     Indication: HEPATITIS C
     Dosage: 90 MCG;QW;SC
     Route: 058
     Dates: start: 20070531, end: 20070816
  2. PEG-INTRON [Suspect]
     Indication: HEPATITIS C
     Dosage: 90 MCG;QW;SC
     Route: 058
     Dates: start: 20070823
  3. RIBAVIRIN [Suspect]
     Dosage: 1000 MG;QD;PO
     Route: 048
     Dates: start: 20070531, end: 20070809
  4. RIBAVIRIN [Suspect]
     Dosage: 1000 MG;QD;PO
     Route: 048
     Dates: start: 20070830
  5. FUROSEMIDE [Suspect]
     Indication: ASCITES
     Dosage: 40 MG;QD;PO
     Route: 048
     Dates: start: 20070101, end: 20070816
  6. ESPIRONOLACTONA [Concomitant]

REACTIONS (3)
  - DEHYDRATION [None]
  - HEPATIC ENCEPHALOPATHY [None]
  - ILL-DEFINED DISORDER [None]
